FAERS Safety Report 7218064-9 (Version None)
Quarter: 2010Q4

REPORT INFORMATION
  Report Type: 
  Country: None (occurrence: None)
  Receive Date: 20101227
  Receipt Date: 20101216
  Transmission Date: 20110411
  Serious: Yes (Hospitalization)
  Sender: FDA-Public Use
  Company Number: 2010SP041914

PATIENT
  Age: 74 Year
  Sex: Female

DRUGS (10)
  1. MIRTAZAPINE [Suspect]
     Indication: ORAL PAIN
     Dosage: 15 MG HS PO; 30 MG HS PO
     Route: 048
     Dates: start: 20100601, end: 20100614
  2. MIRTAZAPINE [Suspect]
     Indication: ORAL PAIN
     Dosage: 15 MG HS PO; 30 MG HS PO
     Route: 048
     Dates: start: 20100615, end: 20100715
  3. TOLEDOMIN (MILNACIPRAN HYDROCHLORIDE) [Suspect]
     Indication: PAIN
     Dosage: 25 MG BID, PO; 50 MG BID PO
     Route: 048
     Dates: start: 20100518, end: 20100524
  4. TOLEDOMIN (MILNACIPRAN HYDROCHLORIDE) [Suspect]
     Indication: PAIN
     Dosage: 25 MG BID, PO; 50 MG BID PO
     Route: 048
     Dates: start: 20100525, end: 20100715
  5. RISPERIDONE [Suspect]
     Indication: SCHIZOPHRENIA
     Dosage: 0.5 MG QD; PO
     Route: 048
     Dates: start: 20100213, end: 20100715
  6. DEPAS (ETIZOLAM) [Suspect]
     Indication: SCHIZOPHRENIA
     Dosage: 0.5 MG QD PO
     Route: 048
     Dates: start: 20100324, end: 20100715
  7. RABEPRAZOLE SODIUM [Suspect]
     Indication: GASTROINTESTINAL DISORDER
     Dosage: 10 MG QD PO
     Route: 048
     Dates: start: 20100213, end: 20100715
  8. MAGMIT (MAGNESIUM OXIDE) [Suspect]
     Indication: GASTROINTESTINAL DISORDER
     Dosage: 1000 MG QD PO
     Route: 048
     Dates: start: 20100203, end: 20100715
  9. GASMOTIN (MOSAPRIDE CITRATE) [Suspect]
     Indication: GASTROINTESTINAL DISORDER
     Dosage: 10 MG QD PO
     Route: 048
     Dates: start: 20100508, end: 20100715
  10. BROTIZOLAM [Concomitant]

REACTIONS (4)
  - GASTROINTESTINAL DISORDER [None]
  - HYPERHIDROSIS [None]
  - INFECTION [None]
  - RHABDOMYOLYSIS [None]
